FAERS Safety Report 17238408 (Version 1)
Quarter: 2020Q1

REPORT INFORMATION
  Report Type: Spontaneous
  Country: US (occurrence: US)
  Receive Date: 20200104
  Receipt Date: 20200104
  Transmission Date: 20200409
  Serious: Yes (Other)
  Sender: FDA-Public Use
  Company Number: None

PATIENT
  Age: 51 Year
  Sex: Female
  Weight: 76.5 kg

DRUGS (3)
  1. BETA BLOCKERS [Concomitant]
     Active Substance: UNSPECIFIED INGREDIENT
  2. BENGAY PAIN RELIEF AND MASSAGE [Suspect]
     Active Substance: MENTHOL
     Indication: MUSCULOSKELETAL STIFFNESS
     Dates: start: 20191229, end: 20191229
  3. PAXIL [Concomitant]
     Active Substance: PAROXETINE HYDROCHLORIDE

REACTIONS (3)
  - Blister [None]
  - Skin burning sensation [None]
  - Skin haemorrhage [None]

NARRATIVE: CASE EVENT DATE: 20191229
